FAERS Safety Report 7285580-3 (Version None)
Quarter: 2011Q1

REPORT INFORMATION
  Report Type: 
  Country: None (occurrence: None)
  Receive Date: 20110210
  Receipt Date: 20110204
  Transmission Date: 20110831
  Serious: Yes (Other)
  Sender: FDA-Public Use
  Company Number: A0779030A

PATIENT
  Age: 58 Year
  Sex: Male
  Weight: 94.5 kg

DRUGS (5)
  1. PROSCAR [Concomitant]
  2. VIAGRA [Concomitant]
  3. AVANDIA [Suspect]
     Indication: DIABETES MELLITUS
     Dosage: 8MG PER DAY
     Route: 048
     Dates: start: 20000131, end: 20030808
  4. CARDURA [Concomitant]
  5. SYNTHROID [Concomitant]

REACTIONS (3)
  - CARDIAC FAILURE CONGESTIVE [None]
  - CARDIAC HYPERTROPHY [None]
  - CONGESTIVE CARDIOMYOPATHY [None]
